FAERS Safety Report 9140939 (Version 2)
Quarter: 2013Q2

REPORT INFORMATION
  Report Type: Spontaneous
  Country: SA (occurrence: SA)
  Receive Date: 20130305
  Receipt Date: 20130403
  Transmission Date: 20140414
  Serious: Yes (Life-Threatening)
  Sender: FDA-Public Use
  Company Number: SA-B.I. PHARMACEUTICALS,INC./RIDGEFIELD-2013-BI-05591AE

PATIENT
  Age: 79 Year
  Sex: Female

DRUGS (5)
  1. PRADAXA [Suspect]
     Indication: THROMBOSIS PROPHYLAXIS
     Dosage: 220 MG
     Route: 048
     Dates: start: 20130209, end: 20130211
  2. PRADAXA [Suspect]
     Indication: ATRIAL FIBRILLATION
  3. WARFARIN [Suspect]
     Indication: ATRIAL FIBRILLATION
     Dosage: 1 MG
     Route: 048
  4. DOMPERIDONE [Concomitant]
     Indication: GASTRITIS
  5. PROTON PUMP INHIBITOR [Concomitant]
     Indication: GASTRITIS

REACTIONS (1)
  - Implant site haemorrhage [Recovered/Resolved]
